FAERS Safety Report 7998982-4 (Version None)
Quarter: 2011Q4

REPORT INFORMATION
  Report Type: 
  Country: None (occurrence: None)
  Receive Date: 20111221
  Receipt Date: 20111215
  Transmission Date: 20120403
  Serious: Yes (Hospitalization)
  Sender: FDA-Public Use
  Company Number: JP-CEPHALON-2011004822

PATIENT
  Sex: Female
  Weight: 41 kg

DRUGS (7)
  1. CEFTRIAXONE SODIUM [Concomitant]
     Dates: start: 20110418, end: 20110421
  2. BENDAMUSTINE HCL [Suspect]
     Indication: B-CELL LYMPHOMA
     Route: 042
     Dates: start: 20110112, end: 20110208
  3. OFLOXACIN [Concomitant]
     Dates: start: 20100819
  4. REBAMIPIDE [Concomitant]
     Dates: start: 20100819
  5. ASPIRIN [Concomitant]
     Dates: start: 20080101
  6. BENDAMUSTINE HCL [Suspect]
     Dosage: REDUCED DOSE
     Route: 041
     Dates: start: 20110304
  7. RITUXIMAB [Concomitant]
     Indication: B-CELL LYMPHOMA
     Dates: start: 20100911, end: 20110512

REACTIONS (5)
  - LIVER DISORDER [None]
  - ANAEMIA [None]
  - HEPATIC FUNCTION ABNORMAL [None]
  - WHITE BLOOD CELL COUNT DECREASED [None]
  - PLATELET COUNT DECREASED [None]
